FAERS Safety Report 19591431 (Version 6)
Quarter: 2021Q4

REPORT INFORMATION
  Report Type: Spontaneous
  Country: US (occurrence: US)
  Receive Date: 20210721
  Receipt Date: 20211202
  Transmission Date: 20220303
  Serious: Yes (Hospitalization, Other)
  Sender: FDA-Public Use
  Company Number: US-PFIZER INC-2021498437

PATIENT
  Age: 64 Year
  Sex: Male

DRUGS (2)
  1. NIVESTYM [Suspect]
     Active Substance: FILGRASTIM-AAFI
     Dosage: 480 UG, DAILY
  2. NIVESTYM [Suspect]
     Active Substance: FILGRASTIM-AAFI
     Dosage: 480 UG, DAILY (480 MCG/1.5 ML, 7 DAYS, EVERY 21 DAYS, REFILLS: 4)

REACTIONS (7)
  - Neoplasm progression [Unknown]
  - Blood test abnormal [Unknown]
  - Neoplasm malignant [Unknown]
  - Cancer pain [Unknown]
  - Spinal pain [Unknown]
  - Asthenia [Unknown]
  - Off label use [Unknown]
